FAERS Safety Report 4664168-4 (Version None)
Quarter: 2005Q2

REPORT INFORMATION
  Report Type: 
  Country: None (occurrence: None)
  Receive Date: 20050516
  Receipt Date: 20050516
  Transmission Date: 20051028
  Serious: Yes (Other)
  Sender: FDA-Public Use
  Company Number: None

PATIENT
  Age: 48 Year
  Sex: Female
  Weight: 91.6266 kg

DRUGS (6)
  1. TRAZODONE    50MG     SIDMAK [Suspect]
     Indication: OSTEOARTHRITIS
     Dosage: 1-2 TABS   Q 6 H PRN  ORAL
     Route: 048
     Dates: start: 20050420, end: 20050425
  2. LEVOTHYROXINE SODIUM [Concomitant]
  3. MULTI-VITAMIN [Concomitant]
  4. CALCIUM CITRATE [Concomitant]
  5. B12 [Concomitant]
  6. ESTRATEST [Concomitant]

REACTIONS (1)
  - URINARY INCONTINENCE [None]
